FAERS Safety Report 21626480 (Version 1)
Quarter: 2022Q4

REPORT INFORMATION
  Report Type: Spontaneous
  Country: US (occurrence: US)
  Receive Date: 20221122
  Receipt Date: 20221122
  Transmission Date: 20230112
  Serious: No
  Sender: FDA-Public Use
  Company Number: US-ROCHE-3034515

PATIENT

DRUGS (1)
  1. RANIBIZUMAB [Suspect]
     Active Substance: RANIBIZUMAB
     Indication: Neovascular age-related macular degeneration
     Dosage: YES
     Route: 042
     Dates: start: 20220217

REACTIONS (2)
  - Hyphaema [Not Recovered/Not Resolved]
  - Vitreous haemorrhage [Recovered/Resolved]
